FAERS Safety Report 9200675 (Version 1)
Quarter: 2013Q1

REPORT INFORMATION
  Report Type: Spontaneous
  Country: NL (occurrence: NL)
  Receive Date: 20130331
  Receipt Date: 20130331
  Transmission Date: 20140127
  Serious: Yes (Hospitalization, Other)
  Sender: FDA-Public Use
  Company Number: NL-TEVA-394468ISR

PATIENT
  Age: 46 Year
  Sex: Female
  Weight: 70 kg

DRUGS (2)
  1. TAMOXIFEN [Suspect]
     Indication: BREAST CANCER
     Dosage: 20 MILLIGRAM DAILY; 1 TIME A DAY 1 PIECE
     Route: 048
     Dates: start: 20120918
  2. TRASTUZUMAB [Interacting]
     Indication: BREAST CANCER
     Dosage: 1 TIME PER 3 WEEKS
     Route: 042
     Dates: start: 20120509

REACTIONS (1)
  - Pancreatitis [Recovering/Resolving]
